FAERS Safety Report 24465739 (Version 1)
Quarter: 2024Q4

REPORT INFORMATION
  Report Type: Report from Study
  Country: US (occurrence: US)
  Receive Date: 20241018
  Receipt Date: 20241018
  Transmission Date: 20250115
  Serious: No
  Sender: ROCHE
  Company Number: US-ROCHE-3534581

PATIENT
  Age: 66 Year
  Sex: Female
  Weight: 90.0 kg

DRUGS (10)
  1. XOLAIR [Suspect]
     Active Substance: OMALIZUMAB
     Indication: Asthma
     Dosage: 2 PREFILLED PER 150 MG EVERY MONTH?DATE OF TREATMENT : 12/JAN/2108.
     Route: 058
  2. XOLAIR [Suspect]
     Active Substance: OMALIZUMAB
     Indication: Rhinitis allergic
  3. XOLAIR [Suspect]
     Active Substance: OMALIZUMAB
     Indication: Asthma
     Dosage: LAST INJECTION DATE: 20/APR/2024.
     Route: 058
  4. WIXELA INHUB [Concomitant]
     Active Substance: FLUTICASONE PROPIONATE\SALMETEROL XINAFOATE
     Dosage: 500/51 PUFF
  5. ALBUTEROL\IPRATROPIUM [Concomitant]
     Active Substance: ALBUTEROL\IPRATROPIUM
     Dosage: BNEBULIZATION EVERY 4 HOURS AS NEEDED
  6. ALBUTEROL SULFATE [Concomitant]
     Active Substance: ALBUTEROL SULFATE
     Dosage: 2 SPRAYS EVERY 4 HOURS AS NEEDED
  7. MONTELUKAST SODIUM [Concomitant]
     Active Substance: MONTELUKAST SODIUM
     Dosage: EACH EVENING
  8. LEVOCETIRIZINE [Concomitant]
     Active Substance: LEVOCETIRIZINE
     Dosage: NIGHT
  9. FLUTICASONE [Concomitant]
     Active Substance: FLUTICASONE
     Route: 045
  10. AZELASTINE [Concomitant]
     Active Substance: AZELASTINE
     Route: 045

REACTIONS (5)
  - Arteriosclerosis coronary artery [Unknown]
  - Bipolar II disorder [Unknown]
  - Pulmonary mass [Unknown]
  - Pain [Unknown]
  - Nausea [Unknown]
